FAERS Safety Report 9472729 (Version 1)
Quarter: 2013Q3

REPORT INFORMATION
  Report Type: Spontaneous
  Country: US (occurrence: US)
  Receive Date: 20130823
  Receipt Date: 20130823
  Transmission Date: 20140515
  Serious: No
  Sender: FDA-Public Use
  Company Number: US-009507513-1308USA008635

PATIENT
  Sex: 0

DRUGS (1)
  1. ASMANEX TWISTHALER [Suspect]
     Indication: ASTHMA
     Dosage: ONE PUFF TWICE A DAY
     Route: 048
     Dates: start: 2011

REACTIONS (3)
  - Drug dose omission [Unknown]
  - Device capturing issue [Unknown]
  - No adverse event [Unknown]
